FAERS Safety Report 7093890-8 (Version None)
Quarter: 2010Q4

REPORT INFORMATION
  Report Type: 
  Country: None (occurrence: None)
  Receive Date: 20101110
  Receipt Date: 20101020
  Transmission Date: 20110411
  Serious: Yes (Hospitalization, Other)
  Sender: FDA-Public Use
  Company Number: US-BAYER-201022656NA

PATIENT
  Age: 26 Year
  Sex: Female
  Weight: 118 kg

DRUGS (9)
  1. YASMIN [Suspect]
     Indication: PRODUCT USED FOR UNKNOWN INDICATION
     Route: 048
     Dates: start: 20050501, end: 20051101
  2. YASMIN [Suspect]
     Route: 048
     Dates: start: 20040801, end: 20051101
  3. MOBIC [Concomitant]
     Dosage: TOTAL DAILY DOSE: 7.5 MG  UNIT DOSE: 7.5 MG
  4. ZITHROMAX [Concomitant]
  5. IBUPROFEN [Concomitant]
  6. HYDROCODONE BITARTRATE AND ACETAMINOPHEN [Concomitant]
  7. RANITIDINE [Concomitant]
  8. ETODOLAC [Concomitant]
  9. LORATADINE [Concomitant]

REACTIONS (10)
  - ATELECTASIS [None]
  - BACK PAIN [None]
  - CHEST PAIN [None]
  - DEEP VEIN THROMBOSIS [None]
  - DYSPNOEA [None]
  - NAUSEA [None]
  - PLEURITIC PAIN [None]
  - PNEUMONIA [None]
  - PULMONARY EMBOLISM [None]
  - URINARY TRACT INFECTION [None]
